FAERS Safety Report 13989024 (Version 1)
Quarter: 2017Q3

REPORT INFORMATION
  Report Type: Spontaneous
  Country: US (occurrence: US)
  Receive Date: 20170919
  Receipt Date: 20170919
  Transmission Date: 20171128
  Serious: Yes (Other)
  Sender: FDA-Public Use
  Company Number: None

PATIENT
  Age: 31 Year
  Sex: Female
  Weight: 72.45 kg

DRUGS (4)
  1. SINGULAIR [Concomitant]
     Active Substance: MONTELUKAST SODIUM
  2. ZYRTEC [Concomitant]
     Active Substance: CETIRIZINE HYDROCHLORIDE
  3. MAGNESIUM [Concomitant]
     Active Substance: MAGNESIUM
  4. SINUS RELIEF NASAL SPRAY (OXYMETAZOLINE HYDROCHLORIDE) [Suspect]
     Active Substance: OXYMETAZOLINE HYDROCHLORIDE
     Indication: NASAL CONGESTION
     Dosage: OTHER STRENGTH:SPRAY;QUANTITY:2 SPRAY(S);?
     Route: 055
     Dates: start: 20170912, end: 20170915

REACTIONS (3)
  - Maternal exposure timing unspecified [None]
  - Gallbladder disorder [None]
  - Pain [None]

NARRATIVE: CASE EVENT DATE: 20170916
